FAERS Safety Report 4342469-7 (Version None)
Quarter: 2004Q2

REPORT INFORMATION
  Report Type: 
  Country: None (occurrence: None)
  Receive Date: 20040416
  Receipt Date: 20040406
  Transmission Date: 20050107
  Serious: Yes (Hospitalization)
  Sender: FDA-Public Use
  Company Number: 2004IM000566

PATIENT
  Age: 37 Year
  Sex: Female
  Weight: 72.5755 kg

DRUGS (1)
  1. ACTIMMUNE [Suspect]
     Indication: INTERSTITIAL LUNG DISEASE
     Dosage: 200 UG; TIW; SUBCUTANEOUS
     Route: 058
     Dates: start: 20031001, end: 20040318

REACTIONS (2)
  - UPPER RESPIRATORY TRACT INFECTION [None]
  - WHITE BLOOD CELL COUNT DECREASED [None]
